FAERS Safety Report 23750800 (Version 2)
Quarter: 2024Q2

REPORT INFORMATION
  Report Type: Report from Study
  Country: US (occurrence: US)
  Receive Date: 20240417
  Receipt Date: 20240501
  Transmission Date: 20240715
  Serious: Yes (Hospitalization, Other)
  Sender: FDA-Public Use
  Company Number: US-GILEAD-2024-0669297

PATIENT
  Age: 31 Year
  Sex: Male

DRUGS (21)
  1. AZTREONAM LYSINE [Suspect]
     Active Substance: AZTREONAM LYSINE
     Indication: Cystic fibrosis
     Dosage: INHALE 1 ML (75 MG) VIA ALTERA NEBULIZER THREE TIMES DAILY FOR 28 DAYS ON THEN 28 DAYS OFF
     Route: 042
  2. AZTREONAM LYSINE [Suspect]
     Active Substance: AZTREONAM LYSINE
     Indication: Illness
  3. BETHKIS [Concomitant]
     Active Substance: TOBRAMYCIN
     Dosage: UNKNOWN
  4. TEZSPIRE [Concomitant]
     Active Substance: TEZEPELUMAB-EKKO
     Dosage: 210 MG UNDER THE SKIN EVERY 4 WEEKS
  5. ROBITUSSIN COLD [Concomitant]
     Dosage: 10 ML THREE TIMES DAILY
  6. FLONASE ALLERGY RELIEF [Concomitant]
     Active Substance: FLUTICASONE PROPIONATE
     Dosage: 1 SPARY IN EACH NOSTRIL TWICE DAILY
  7. PULMICORT TURBUHALER [Concomitant]
     Active Substance: BUDESONIDE
     Dosage: 1 VIAL BY NEBULIZER TWICE DAILY
  8. ALBUTEROL SULFATE [Concomitant]
     Active Substance: ALBUTEROL SULFATE
     Dosage: 1 VIAL BY NEBULIZER AS NEEDED
  9. DIAZEPAM [Concomitant]
     Active Substance: DIAZEPAM
     Dosage: 2.5ML THREE TIMES DAILY
  10. LORATADINE [Concomitant]
     Active Substance: LORATADINE
     Dosage: 10 MG DAILY
  11. MIRALAX [Concomitant]
     Active Substance: POLYETHYLENE GLYCOL 3350
     Dosage: ONCE DAILY
  12. KEPPRA [Concomitant]
     Active Substance: LEVETIRACETAM
     Dosage: 6 ML TWICE DAILY
  13. IPRATROPIUM [Concomitant]
     Active Substance: IPRATROPIUM
     Dosage: 1 VIAL FOUR TIMES DAILY
  14. BACLOFEN [Concomitant]
     Active Substance: BACLOFEN
     Dosage: 25MG THREE TIMES DAILY
  15. SINGULAIR [Concomitant]
     Active Substance: MONTELUKAST SODIUM
     Dosage: ONCE DAILY
  16. DAILY-VITE [Concomitant]
     Dosage: UNKNOWN
  17. MENTHOL [Concomitant]
     Active Substance: MENTHOL
  18. CLARITIN [Concomitant]
     Active Substance: LORATADINE
  19. KEPPRA [Concomitant]
     Active Substance: LEVETIRACETAM
  20. ALBUTEROL\IPRATROPIUM [Concomitant]
     Active Substance: ALBUTEROL\IPRATROPIUM
  21. VITAMIN B-COMPLEX [Concomitant]
     Active Substance: DEXPANTHENOL\NIACINAMIDE\PYRIDOXINE HYDROCHLORIDE\RIBOFLAVIN 5^-PHOSPHATE SODIUM\THIAMINE HYDROCHLOR

REACTIONS (1)
  - Pneumonia [Unknown]
